FAERS Safety Report 10736541 (Version 1)
Quarter: 2015Q1

REPORT INFORMATION
  Report Type: Spontaneous
  Country: US (occurrence: None)
  Receive Date: 20150122
  Receipt Date: 20150122
  Transmission Date: 20150721
  Serious: Yes (Death)
  Sender: FDA-Public Use
  Company Number: 2015010157

PATIENT
  Age: 34 Year
  Sex: Male

DRUGS (5)
  1. AMPHETAMINE [Suspect]
     Active Substance: AMPHETAMINE
  2. OXYCODONE [Suspect]
     Active Substance: OXYCODONE
  3. SKELETAL MUSCLE RELAXANT [Suspect]
     Active Substance: UNSPECIFIED INGREDIENT
  4. LORAZEPAM. [Suspect]
     Active Substance: LORAZEPAM
  5. MEPROBAMATE. [Suspect]
     Active Substance: MEPROBAMATE

REACTIONS (3)
  - Completed suicide [None]
  - Respiratory arrest [None]
  - Cardiac arrest [None]

NARRATIVE: CASE EVENT DATE: 2013
